FAERS Safety Report 25947919 (Version 1)
Quarter: 2025Q4

REPORT INFORMATION
  Report Type: Spontaneous
  Country: US (occurrence: US)
  Receive Date: 20251022
  Receipt Date: 20251022
  Transmission Date: 20260118
  Serious: No
  Sender: ABBVIE
  Company Number: US-ABBVIE-6507379

PATIENT
  Sex: Male

DRUGS (1)
  1. REFRESH TEARS PF [Suspect]
     Active Substance: CARBOXYMETHYLCELLULOSE SODIUM\GLYCERIN
     Indication: Dry eye
     Dosage: TIME INTERVAL: 0.33333333 DAYS: PRESERVATIVE FREE
     Route: 047
     Dates: start: 2024

REACTIONS (2)
  - Wrong technique in device usage process [Not Recovered/Not Resolved]
  - Product container issue [Not Recovered/Not Resolved]

NARRATIVE: CASE EVENT DATE: 20250101
